FAERS Safety Report 18151138 (Version 20)
Quarter: 2021Q3

REPORT INFORMATION
  Report Type: Spontaneous
  Country: US (occurrence: US)
  Receive Date: 20200814
  Receipt Date: 20210910
  Transmission Date: 20211014
  Serious: Yes (Hospitalization, Other)
  Sender: FDA-Public Use
  Company Number: US-PFIZER INC-2020030539

PATIENT
  Age: 64 Year
  Sex: Female

DRUGS (3)
  1. LYRICA [Suspect]
     Active Substance: PREGABALIN
     Indication: PAIN
     Dosage: 300 MG, THREE TIMES A DAY
     Route: 048
  2. LYRICA [Suspect]
     Active Substance: PREGABALIN
     Indication: SCIATICA
     Dosage: 200 MG, THREE TIMES A DAY
     Route: 048
  3. LYRICA [Suspect]
     Active Substance: PREGABALIN
     Indication: SEIZURE
     Dosage: 300 MG
     Route: 048

REACTIONS (19)
  - Confusional state [Unknown]
  - Head injury [Unknown]
  - Thinking abnormal [Unknown]
  - Drug ineffective [Unknown]
  - Anxiety [Unknown]
  - Blood pressure decreased [Unknown]
  - Fall [Unknown]
  - Intentional product use issue [Unknown]
  - Hypertension [Unknown]
  - Disturbance in attention [Unknown]
  - Product prescribing error [Unknown]
  - Blindness [Unknown]
  - Headache [Unknown]
  - Cardiac aneurysm [Unknown]
  - Intracranial aneurysm [Unknown]
  - Balance disorder [Unknown]
  - Back pain [Unknown]
  - Prescribed overdose [Unknown]
  - Affective disorder [Unknown]
